FAERS Safety Report 8067490-7 (Version None)
Quarter: 2012Q1

REPORT INFORMATION
  Report Type: 
  Country: None (occurrence: None)
  Receive Date: 20120124
  Receipt Date: 20120120
  Transmission Date: 20120608
  Serious: Yes (Other)
  Sender: FDA-Public Use
  Company Number: US-PFIZER INC-2012017119

PATIENT
  Sex: Female
  Weight: 129 kg

DRUGS (1)
  1. IBUPROFEN (ADVIL) [Suspect]
     Indication: PAIN
     Dosage: UNK
     Route: 048
     Dates: start: 20120118, end: 20120118

REACTIONS (5)
  - PLEURITIC PAIN [None]
  - PULMONARY CONGESTION [None]
  - DYSPNOEA [None]
  - COUGH [None]
  - FOREIGN BODY [None]
